FAERS Safety Report 8389261-4 (Version None)
Quarter: 2012Q2

REPORT INFORMATION
  Report Type: 
  Country: None (occurrence: None)
  Receive Date: 20120528
  Receipt Date: 20120523
  Transmission Date: 20120825
  Serious: Yes (Other)
  Sender: FDA-Public Use
  Company Number: PHHY2012BR045165

PATIENT
  Sex: Female

DRUGS (7)
  1. SIMVASTATIN [Suspect]
     Indication: BLOOD CHOLESTEROL
     Dosage: 20 MG, DAILY
  2. ACETYLSALICYLIC ACID SRT [Concomitant]
     Dosage: 1 DF, QD (AFTER LUNCH)
  3. EXFORGE [Suspect]
     Indication: BLOOD PRESSURE
     Dosage: 1 DF (320/5 MG), DAILY
  4. INSULIN [Concomitant]
     Dosage: 40 U, DAILY (10 U IN THE MORNING, 25 U IN THE AFTEROON AND 5 U AT DINNER)
  5. HYDROCHLOROTHIAZIDE [Concomitant]
     Indication: CARDIAC DISORDER
     Dosage: 1 DF, DAILY
  6. CARDIOL [Concomitant]
     Indication: CARDIAC DISORDER
     Dosage: 2 DF, DAILY
  7. INSULIN HUMAN [Concomitant]
     Indication: DIABETES MELLITUS
     Dosage: 30 U, DAILY (30 U IN THE MORNING AND 15 U AT DINNER)

REACTIONS (2)
  - INFLUENZA [None]
  - HYPOGLYCAEMIA [None]
